FAERS Safety Report 5631775-1 (Version None)
Quarter: 2008Q1

REPORT INFORMATION
  Report Type: 
  Country: None (occurrence: None)
  Receive Date: 20080213
  Receipt Date: 20080126
  Transmission Date: 20080703
  Serious: Yes (Hospitalization, Other)
  Sender: FDA-Public Use
  Company Number: 2008AP000331

PATIENT
  Age: 58 Year
  Sex: Female

DRUGS (11)
  1. PAROXETINE HCL [Suspect]
     Indication: OBSESSIVE-COMPULSIVE DISORDER
     Dosage: 60 MG TAB; PO; QD, 60 MG; QD PO
     Route: 048
  2. METHYLTHIONUIM CHLORIDE (METHYLTHIONUIM CHLORIDE) [Suspect]
  3. SIMVASTATIN [Concomitant]
  4. OMEPRAZOLE [Concomitant]
  5. MIDAZOLAM HCL [Concomitant]
  6. PROPOFOL [Concomitant]
  7. FENTANYL [Concomitant]
  8. ROCURONIUM BROMIDE (ROCURONIUM BROMIDE) [Concomitant]
  9. SEVOFLURANE [Concomitant]
  10. ATROPINE [Concomitant]
  11. NEOSTIGMINE (NEOSTIGMINE) [Concomitant]

REACTIONS (3)
  - DRUG INTERACTION [None]
  - HYPOTENSION [None]
  - SEROTONIN SYNDROME [None]
